FAERS Safety Report 8090919-5 (Version None)
Quarter: 2012Q1

REPORT INFORMATION
  Report Type: 
  Country: None (occurrence: None)
  Receive Date: 20120128
  Receipt Date: 20110818
  Transmission Date: 20120608
  Serious: No
  Sender: FDA-Public Use
  Company Number: US-ABBOTT-11P-163-0848053-00

PATIENT
  Age: 61 Year
  Sex: Female

DRUGS (15)
  1. VITAMIN D [Concomitant]
     Indication: SUPPLEMENTATION THERAPY
     Route: 048
  2. CALCIUM [Concomitant]
     Indication: OSTEOPENIA
     Route: 048
  3. ALPRAZOLAM [Concomitant]
     Indication: INSOMNIA
     Dosage: EVERY NIGHT
     Route: 048
  4. HYDROCODONE BITARTRATE [Concomitant]
     Indication: INSOMNIA
     Dosage: ONE BY MOUTH EVERY NIGHT
     Route: 048
  5. METHOTREXATE [Concomitant]
     Indication: PRODUCT USED FOR UNKNOWN INDICATION
     Dosage: 8 PILLS EVERY WEEK
  6. HUMIRA [Suspect]
     Indication: PSORIASIS
     Dates: start: 20090801
  7. FOLIC ACID [Concomitant]
     Indication: SUPPLEMENTATION THERAPY
     Route: 048
  8. FISH OIL [Concomitant]
     Indication: SUPPLEMENTATION THERAPY
     Route: 048
  9. MULTI-VITAMINS [Concomitant]
     Indication: SUPPLEMENTATION THERAPY
     Dosage: ONCE DAILY
     Route: 048
  10. PREDNISONE TAB [Concomitant]
     Route: 048
  11. ASPIRIN [Concomitant]
     Indication: CARDIOVASCULAR EVENT PROPHYLAXIS
     Route: 048
  12. PAXIL [Concomitant]
     Indication: FEELING ABNORMAL
     Route: 048
  13. HYDROCODONE BITARTRATE [Concomitant]
     Indication: PAIN
  14. LOVASTATIN [Concomitant]
     Indication: BLOOD CHOLESTEROL
     Route: 048
  15. PREDNISONE TAB [Concomitant]
     Indication: PRODUCT USED FOR UNKNOWN INDICATION
     Dosage: 20MG TO 30MG, DAILY
     Route: 048

REACTIONS (1)
  - INJECTION SITE PAIN [None]
